FAERS Safety Report 9728323 (Version 1)
Quarter: 2013Q4

REPORT INFORMATION
  Report Type: Spontaneous
  Country: US (occurrence: US)
  Receive Date: 20131204
  Receipt Date: 20131204
  Transmission Date: 20140711
  Serious: Yes (Death, Other)
  Sender: FDA-Public Use
  Company Number: US-JNJFOC-20131116768

PATIENT
  Age: 43 Year
  Sex: Female
  Weight: 102.06 kg

DRUGS (8)
  1. RISPERDAL CONSTA [Suspect]
     Indication: SCHIZOPHRENIA
     Route: 030
  2. RISPERDAL [Suspect]
     Indication: SCHIZOPHRENIA
     Route: 048
  3. TOPAMAX [Suspect]
     Indication: WEIGHT CONTROL
     Route: 065
  4. TOPAMAX [Suspect]
     Indication: CONVULSION
     Route: 065
  5. ABILIFY MAINTENA [Suspect]
     Indication: SCHIZOPHRENIA
     Route: 030
     Dates: start: 201306, end: 2013
  6. ABILIFY [Suspect]
     Indication: PRODUCT USED FOR UNKNOWN INDICATION
     Route: 048
     Dates: start: 20131022, end: 201311
  7. THORAZINE [Suspect]
     Indication: PRODUCT USED FOR UNKNOWN INDICATION
     Route: 065
  8. DEPAKOTE [Suspect]
     Indication: PRODUCT USED FOR UNKNOWN INDICATION
     Route: 065

REACTIONS (5)
  - Death [Fatal]
  - Depressed level of consciousness [Unknown]
  - Psychotic disorder [Unknown]
  - Agitation [Unknown]
  - Gait disturbance [Recovered/Resolved]
